FAERS Safety Report 10393199 (Version 1)
Quarter: 2014Q3

REPORT INFORMATION
  Report Type: Spontaneous
  Country: GB (occurrence: None)
  Receive Date: 20140815
  Receipt Date: 20140815
  Transmission Date: 20150326
  Serious: Yes (Other)
  Sender: FDA-Public Use
  Company Number: GB-DEXPHARM-20140532

PATIENT
  Sex: Female

DRUGS (4)
  1. ARCOXIA [Suspect]
     Active Substance: ETORICOXIB
  2. DICLOFENAC [Concomitant]
     Active Substance: DICLOFENAC
  3. IBUPROFEN. [Suspect]
     Active Substance: IBUPROFEN
  4. NAPROXEN. [Suspect]
     Active Substance: NAPROXEN

REACTIONS (1)
  - Pseudodementia [None]
